FAERS Safety Report 4355676-4 (Version None)
Quarter: 2004Q2

REPORT INFORMATION
  Report Type: 
  Country: None (occurrence: None)
  Receive Date: 20040507
  Receipt Date: 20040426
  Transmission Date: 20050107
  Serious: Yes (Hospitalization)
  Sender: FDA-Public Use
  Company Number: 2004-04-1686

PATIENT
  Age: 83 Year
  Sex: Female

DRUGS (13)
  1. SOLGANAL (AUROTHIOGLUCOSE) INJECTABLE SUSPENSION [Suspect]
     Indication: PEMPHIGUS
     Dosage: UNKNOWN INTRAMUSCULAR; 25 MG INTRAMUSCULAR; 50 MG QD INTRAMUSCULAR
     Route: 030
     Dates: start: 20000601, end: 20000601
  2. SOLGANAL (AUROTHIOGLUCOSE) INJECTABLE SUSPENSION [Suspect]
     Indication: PEMPHIGUS
     Dosage: UNKNOWN INTRAMUSCULAR; 25 MG INTRAMUSCULAR; 50 MG QD INTRAMUSCULAR
     Route: 030
     Dates: start: 20000705, end: 20000701
  3. PREDNISONE [Suspect]
     Indication: PEMPHIGUS
     Dosage: 2.5 MG QOD UNKNOWN; 60 MG QD UNKNOWN
     Dates: start: 20000121
  4. PREDNISONE [Suspect]
     Indication: PEMPHIGUS
     Dosage: 2.5 MG QOD UNKNOWN; 60 MG QD UNKNOWN
     Dates: start: 20000701
  5. NORVASC [Concomitant]
  6. GLUCOTROL [Concomitant]
  7. LEVOTHYROXINE [Concomitant]
  8. NYSTATIN [Concomitant]
  9. PERDIEM [Concomitant]
  10. SINEMET [Concomitant]
  11. PENICILLIN [Concomitant]
  12. CALCIUM CARBONATE [Concomitant]
  13. STOOL SOFTENER (NOS) [Concomitant]

REACTIONS (4)
  - DISEASE RECURRENCE [None]
  - PEMPHIGUS [None]
  - PURPURA [None]
  - THROMBOCYTOPENIA [None]
